FAERS Safety Report 11263420 (Version 2)
Quarter: 2015Q3

REPORT INFORMATION
  Report Type: Report from Study
  Country: BR (occurrence: BR)
  Receive Date: 20150713
  Receipt Date: 20150724
  Transmission Date: 20151125
  Serious: Yes (Death, Other)
  Sender: FDA-Public Use
  Company Number: PHHY2015BR082028

PATIENT
  Sex: Male
  Weight: 90 kg

DRUGS (1)
  1. EXELON PATCH [Suspect]
     Active Substance: RIVASTIGMINE
     Indication: DEMENTIA ALZHEIMER^S TYPE
     Dosage: PATCH 10 (CM2)
     Route: 062

REACTIONS (7)
  - Respiratory failure [Fatal]
  - Dysphagia [Fatal]
  - Renal failure [Fatal]
  - Cardiac failure [Fatal]
  - Urosepsis [Fatal]
  - Urinary tract infection [Fatal]
  - Weight decreased [Fatal]
